FAERS Safety Report 4487222-9 (Version None)
Quarter: 2004Q4

REPORT INFORMATION
  Report Type: 
  Country: None (occurrence: None)
  Receive Date: 20041022
  Receipt Date: 20041008
  Transmission Date: 20050328
  Serious: Yes (Hospitalization)
  Sender: FDA-Public Use
  Company Number: 2004CG02044

PATIENT
  Age: 31 Year
  Sex: Male
  Weight: 90 kg

DRUGS (10)
  1. XYLOCAINE W/ EPINEPHRINE [Suspect]
     Indication: LOCAL ANAESTHESIA
     Dosage: 50 MG ONCE IN
     Dates: start: 20041008, end: 20041008
  2. XYLOCAINE [Concomitant]
  3. DIPRIVAN [Concomitant]
  4. KETALAR [Concomitant]
  5. DESFLURANE [Concomitant]
  6. ULTIVA [Concomitant]
  7. SEREVENT [Concomitant]
  8. VENTOLIN [Concomitant]
  9. FORADIL [Concomitant]
  10. AUGMENTIN '125' [Concomitant]

REACTIONS (2)
  - ANAESTHETIC COMPLICATION [None]
  - BRONCHOSPASM [None]
